FAERS Safety Report 21590805 (Version 1)
Quarter: 2022Q4

REPORT INFORMATION
  Report Type: Spontaneous
  Country: DE (occurrence: DE)
  Receive Date: 20221114
  Receipt Date: 20221114
  Transmission Date: 20230112
  Serious: Yes (Hospitalization)
  Sender: FDA-Public Use
  Company Number: DE-ADRED-07801-01

PATIENT
  Age: 53 Year
  Sex: Male
  Weight: 100 kg

DRUGS (1)
  1. ARIPIPRAZOLE [Suspect]
     Active Substance: ARIPIPRAZOLE
     Indication: Product used for unknown indication
     Dosage: 10 MG, 1-0-0-0, TABLET
     Route: 048

REACTIONS (6)
  - Lithiasis [Recovered/Resolved]
  - Dysuria [Recovered/Resolved]
  - Haematuria [Recovered/Resolved]
  - Renal pain [Recovered/Resolved]
  - Nephrectasia [Recovered/Resolved]
  - Renal colic [Recovered/Resolved]
